FAERS Safety Report 19719875 (Version 1)
Quarter: 2021Q3

REPORT INFORMATION
  Report Type: Spontaneous
  Country: US (occurrence: US)
  Receive Date: 20210819
  Receipt Date: 20210819
  Transmission Date: 20211014
  Serious: No
  Sender: FDA-Public Use
  Company Number: None

PATIENT
  Age: 24 Year
  Sex: Female
  Weight: 84.37 kg

DRUGS (1)
  1. SERTRALINE (SERTRALINE HCL 100MG TAB) [Suspect]
     Active Substance: SERTRALINE HYDROCHLORIDE
     Dates: start: 20210512, end: 20210524

REACTIONS (1)
  - Mania [None]

NARRATIVE: CASE EVENT DATE: 20210524
